FAERS Safety Report 7053280-0 (Version None)
Quarter: 2010Q4

REPORT INFORMATION
  Report Type: 
  Country: None (occurrence: None)
  Receive Date: 20101020
  Receipt Date: 20101006
  Transmission Date: 20110411
  Serious: Yes (Hospitalization, Other)
  Sender: FDA-Public Use
  Company Number: PHEH2009US09113

PATIENT
  Sex: Male

DRUGS (1)
  1. ZOMETA [Suspect]

REACTIONS (34)
  - ANAEMIA [None]
  - ANGINA PECTORIS [None]
  - ANXIETY [None]
  - APNOEA [None]
  - ARTERIOSCLEROSIS CORONARY ARTERY [None]
  - BONE LESION [None]
  - BRONCHITIS [None]
  - CATARACT OPERATION [None]
  - CORONARY ARTERY BYPASS [None]
  - CORONARY ARTERY DISEASE [None]
  - DECREASED APPETITE [None]
  - DEFORMITY [None]
  - EMOTIONAL DISTRESS [None]
  - HYPERGLYCAEMIA [None]
  - HYPERTENSION [None]
  - HYPOKALAEMIA [None]
  - HYPOPNOEA [None]
  - INFECTION [None]
  - INJURY [None]
  - MULTIPLE MYELOMA [None]
  - NEUROPATHY PERIPHERAL [None]
  - OEDEMA PERIPHERAL [None]
  - ORTHOSTATIC HYPOTENSION [None]
  - OSTEONECROSIS OF JAW [None]
  - PAIN [None]
  - PERIODONTITIS [None]
  - PNEUMONIA [None]
  - RASH [None]
  - RHINITIS ALLERGIC [None]
  - TOOTH EXTRACTION [None]
  - TROPONIN INCREASED [None]
  - TYPE 1 DIABETES MELLITUS [None]
  - TYPE 2 DIABETES MELLITUS [None]
  - UPPER RESPIRATORY TRACT INFECTION [None]
